FAERS Safety Report 18347246 (Version 1)
Quarter: 2020Q4

REPORT INFORMATION
  Report Type: Spontaneous
  Country: US (occurrence: US)
  Receive Date: 20201005
  Receipt Date: 20201005
  Transmission Date: 20210114
  Serious: Yes (Other)
  Sender: FDA-Public Use
  Company Number: US-AMGEN-USASP2020158503

PATIENT
  Age: 11 Year
  Sex: Male

DRUGS (3)
  1. NIVOLUMAB [Concomitant]
     Active Substance: NIVOLUMAB
     Indication: PLEURAL NEOPLASM
     Dosage: UNK
  2. IMLYGIC [Suspect]
     Active Substance: TALIMOGENE LAHERPAREPVEC
     Indication: MELANOMA RECURRENT
     Dosage: 10^6 PARTICLES
     Route: 034
     Dates: start: 2020
  3. IMLYGIC [Suspect]
     Active Substance: TALIMOGENE LAHERPAREPVEC
     Dosage: 10^8 PARTICLES
     Route: 034

REACTIONS (3)
  - Optic neuritis [Unknown]
  - Off label use [Unknown]
  - Acoustic neuritis [Unknown]

NARRATIVE: CASE EVENT DATE: 2020
